FAERS Safety Report 8965518 (Version 1)
Quarter: 2012Q4

REPORT INFORMATION
  Report Type: Spontaneous
  Country: US (occurrence: None)
  Receive Date: 20121205
  Receipt Date: 20121205
  Transmission Date: 20130627
  Serious: Yes (Other)
  Sender: FDA-Public Use
  Company Number: 1506560

PATIENT

DRUGS (2)
  1. MORPHINE SULFATE INJECTION [Suspect]
     Indication: SURGERY
     Dosage: PCA
     Route: 050
  2. FENTANYL CITRATE [Suspect]
     Indication: DRUG USE FOR UNKNOWN INDICATION

REACTIONS (6)
  - Lethargy [None]
  - Depressed level of consciousness [None]
  - Hypotension [None]
  - Heart rate increased [None]
  - Incorrect dose administered by device [None]
  - Device malfunction [None]
